FAERS Safety Report 11197757 (Version 1)
Quarter: 2015Q2

REPORT INFORMATION
  Report Type: Spontaneous
  Country: FR (occurrence: FR)
  Receive Date: 20150617
  Receipt Date: 20150617
  Transmission Date: 20150821
  Serious: Yes (Hospitalization)
  Sender: FDA-Public Use
  Company Number: FR-BAXTER-2015BAX030974

PATIENT
  Age: 77 Year
  Sex: Female

DRUGS (9)
  1. GLUCOSE A 5 POUR CENT BAXTER, SOLUTION POUR PERFUSION [Suspect]
     Active Substance: DEXTROSE
     Indication: MEDICATION DILUTION
     Route: 042
     Dates: start: 20090306, end: 20090306
  2. ZOPHREN [Suspect]
     Active Substance: ONDANSETRON
     Indication: ADENOCARCINOMA OF COLON
     Route: 042
     Dates: start: 20090306, end: 20090306
  3. ELOXATIN [Suspect]
     Active Substance: OXALIPLATIN
     Indication: ADENOCARCINOMA OF COLON
     Route: 040
     Dates: start: 20090306, end: 20090306
  4. CHLORURE DE SODIUM 0.9% VIAFLO, SOLUTION POUR PERFUSION [Suspect]
     Active Substance: SODIUM CHLORIDE
     Indication: MEDICATION DILUTION
     Route: 042
     Dates: start: 20090306, end: 20090306
  5. CALCIUM LEVOFOLINATE [Suspect]
     Active Substance: LEVOLEUCOVORIN CALCIUM
     Indication: ADENOCARCINOMA OF COLON
     Route: 042
     Dates: start: 20090306, end: 20090306
  6. FLUOROURACIL. [Suspect]
     Active Substance: FLUOROURACIL
     Indication: ADENOCARCINOMA OF COLON
     Route: 040
     Dates: start: 20090306, end: 20090306
  7. METHYLPREDNISOLONE MERCK [Suspect]
     Active Substance: METHYLPREDNISOLONE
     Indication: ADENOCARCINOMA OF COLON
     Route: 040
     Dates: start: 20090306, end: 20090306
  8. CALCIUM CHLORIDE. [Suspect]
     Active Substance: CALCIUM CHLORIDE
     Indication: ADENOCARCINOMA OF COLON
     Route: 042
     Dates: start: 20090306, end: 20090306
  9. XENETIX [Suspect]
     Active Substance: IOBITRIDOL
     Indication: X-RAY WITH CONTRAST
     Route: 065
     Dates: start: 20090306, end: 20090306

REACTIONS (1)
  - Infusion site extravasation [Recovering/Resolving]

NARRATIVE: CASE EVENT DATE: 20090306
